FAERS Safety Report 8923721 (Version 1)
Quarter: 2012Q4

REPORT INFORMATION
  Report Type: Spontaneous
  Country: GB (occurrence: None)
  Receive Date: 20121115
  Receipt Date: 20121115
  Transmission Date: 20130627
  Serious: Yes (Life-Threatening, Hospitalization)
  Sender: FDA-Public Use
  Company Number: 2012MA013308

PATIENT
  Age: 75 Year
  Sex: Male

DRUGS (1)
  1. PACLITAXEL [Suspect]
     Indication: DRUG USE FOR UNKNOWN INDICATION
     Route: 042
     Dates: start: 20120905, end: 20120905

REACTIONS (4)
  - Haemoptysis [None]
  - Dyspnoea [None]
  - Pyrexia [None]
  - Lung infiltration [None]
